FAERS Safety Report 4368207-X (Version None)
Quarter: 2004Q2

REPORT INFORMATION
  Report Type: 
  Country: None (occurrence: None)
  Receive Date: 20040527
  Receipt Date: 20040512
  Transmission Date: 20050107
  Serious: Yes (Other)
  Sender: FDA-Public Use
  Company Number: 2004-DE-02794GD

PATIENT
  Age: 44 Year
  Sex: Male

DRUGS (3)
  1. NEVIRAPINE         (NEVIRAPINE) [Suspect]
     Indication: HIV INFECTION
  2. LAMIVUDINE (LAMIVUDINE) [Suspect]
     Indication: HIV INFECTION
  3. ABACAVIR (ABACAVIR) [Suspect]
     Indication: HIV INFECTION

REACTIONS (1)
  - ASEPTIC NECROSIS BONE [None]
